FAERS Safety Report 15934771 (Version 8)
Quarter: 2020Q2

REPORT INFORMATION
  Report Type: Spontaneous
  Country: US (occurrence: US)
  Receive Date: 20190207
  Receipt Date: 20200506
  Transmission Date: 20200713
  Serious: Yes (Hospitalization, Other)
  Sender: FDA-Public Use
  Company Number: US-ACTELION-A-NJ2019-185874

PATIENT
  Age: 50 Year
  Sex: Female

DRUGS (26)
  1. VELETRI [Suspect]
     Active Substance: EPOPROSTENOL
     Indication: PULMONARY ARTERIAL HYPERTENSION
     Dosage: 41 NG/KG, PER MIN
     Route: 042
     Dates: start: 201504
  2. SILDENAFIL. [Concomitant]
     Active Substance: SILDENAFIL
     Dosage: 40 MG, Q8H
     Dates: start: 20160209
  3. CYANOCOBALAMIN. [Concomitant]
     Active Substance: CYANOCOBALAMIN
     Dosage: 1000 MCG
     Dates: start: 20190127
  4. DOXEPIN [Concomitant]
     Active Substance: DOXEPIN
     Dosage: 10 MG
     Dates: start: 20190127
  5. FUROSEMIDE. [Concomitant]
     Active Substance: FUROSEMIDE
     Dosage: 40 MG
     Dates: start: 20190127
  6. PANTOPRAZOLE [Concomitant]
     Active Substance: PANTOPRAZOLE
     Dosage: 40 MG
     Dates: start: 20190127
  7. VENTOLIN HFA [Concomitant]
     Active Substance: ALBUTEROL SULFATE
     Dosage: 90 MCG/ACTUATION INH
     Dates: start: 20190127
  8. METOLAZONE. [Concomitant]
     Active Substance: METOLAZONE
     Dosage: 2.5 MG
     Dates: start: 20190127
  9. SPIRONOLACTONE. [Concomitant]
     Active Substance: SPIRONOLACTONE
     Dosage: 50 MG
     Dates: start: 20190127
  10. VELETRI [Suspect]
     Active Substance: EPOPROSTENOL
     Dosage: 40 NG/KG, PER MIN
     Route: 042
     Dates: start: 201504
  11. ASPIRIN. [Concomitant]
     Active Substance: ASPIRIN
     Dosage: 81 MG
     Dates: start: 20190127
  12. SODIUM CHLORIDE. [Concomitant]
     Active Substance: SODIUM CHLORIDE
     Dosage: 0.65 UNK
     Route: 045
     Dates: start: 20190127
  13. VITAMIN D3 [Concomitant]
     Active Substance: CHOLECALCIFEROL
     Dosage: UNK
     Route: 048
     Dates: start: 20190127
  14. METHOLEN [Concomitant]
     Dosage: UNK
     Dates: start: 20190127
  15. ASPIRIN W/CAFFEINE [Concomitant]
     Active Substance: ASPIRIN\CAFFEINE
     Dosage: UNK
     Dates: start: 20190127
  16. HYDROXYZINE [Concomitant]
     Active Substance: HYDROXYZINE HYDROCHLORIDE
     Dosage: 50 MG
     Dates: start: 20190127
  17. OPSUMIT [Suspect]
     Active Substance: MACITENTAN
     Indication: PULMONARY ARTERIAL HYPERTENSION
     Dosage: 10 MG, QD
     Route: 048
     Dates: start: 201702
  18. ATORVASTATIN [Concomitant]
     Active Substance: ATORVASTATIN
     Dosage: 40 MG
     Dates: start: 20190127
  19. DOCUSATE SODIUM. [Concomitant]
     Active Substance: DOCUSATE SODIUM
     Dosage: 100 MG
     Dates: start: 20190127
  20. OXYCODONE AND ACETAMINOPHEN [Concomitant]
     Active Substance: ACETAMINOPHEN\OXYCODONE HYDROCHLORIDE
     Dosage: 10-325 MG PER TABLET
     Dates: start: 20190127
  21. POTASSIUM CHLORIDE. [Concomitant]
     Active Substance: POTASSIUM CHLORIDE
     Dosage: 20 UNK
     Dates: start: 20190127
  22. FLUOXETINE [Concomitant]
     Active Substance: FLUOXETINE HYDROCHLORIDE
     Dosage: 40 MG
     Dates: start: 20190127
  23. ONDANSETRON [Concomitant]
     Active Substance: ONDANSETRON
  24. VELETRI [Suspect]
     Active Substance: EPOPROSTENOL
     Dosage: 26 NG/KG, PER MIN
     Route: 042
     Dates: start: 201504
  25. ALPRAZOLAM. [Concomitant]
     Active Substance: ALPRAZOLAM
     Dosage: UNK
     Dates: start: 20190127
  26. LOPERAMIDE [Concomitant]
     Active Substance: LOPERAMIDE
     Dosage: 2 MG
     Dates: start: 20190127

REACTIONS (16)
  - Vascular device infection [Recovered/Resolved]
  - Catheter site pain [Recovered/Resolved]
  - Chest pain [Recovered/Resolved]
  - Dyspnoea exertional [Recovered/Resolved]
  - Catheter site erythema [Recovered/Resolved]
  - Complication associated with device [Unknown]
  - Catheter management [Unknown]
  - Bacteraemia [Recovered/Resolved]
  - Catheter site infection [Recovered/Resolved]
  - Pain [Recovered/Resolved]
  - Device dislocation [Unknown]
  - Catheter site swelling [Recovered/Resolved]
  - Catheter culture positive [Recovered/Resolved]
  - Staphylococcus test positive [Recovered/Resolved]
  - Hospitalisation [Unknown]
  - Staphylococcal infection [Recovered/Resolved]

NARRATIVE: CASE EVENT DATE: 20180209
